FAERS Safety Report 4658110-X (Version None)
Quarter: 2005Q2

REPORT INFORMATION
  Report Type: 
  Country: None (occurrence: None)
  Receive Date: 20050509
  Receipt Date: 20050425
  Transmission Date: 20051028
  Serious: Yes (Hospitalization)
  Sender: FDA-Public Use
  Company Number: 2005MP000137

PATIENT
  Age: 67 Year
  Sex: Male
  Weight: 104.3273 kg

DRUGS (5)
  1. SALAGEN [Suspect]
     Indication: SJOGREN'S SYNDROME
     Dosage: 5 MG; QID; PO
     Route: 048
     Dates: start: 19550101
  2. POTASSIUM CHLORIDE [Concomitant]
  3. BLOOD PRESSURE MEDICATIONS [Concomitant]
  4. ....... [Concomitant]
  5. ALLERGY MEDICATIONS [Concomitant]

REACTIONS (12)
  - ABASIA [None]
  - CAPILLARY DISORDER [None]
  - CONVULSION [None]
  - DEHYDRATION [None]
  - DISORIENTATION [None]
  - DIZZINESS [None]
  - EAR INFECTION STAPHYLOCOCCAL [None]
  - FALL [None]
  - HYPONATRAEMIA [None]
  - MYOCARDIAL INFARCTION [None]
  - NIGHTMARE [None]
  - OCULAR VASCULAR DISORDER [None]
